FAERS Safety Report 4890514-2 (Version None)
Quarter: 2006Q1

REPORT INFORMATION
  Report Type: 
  Country: None (occurrence: None)
  Receive Date: 20060123
  Receipt Date: 20060109
  Transmission Date: 20060701
  Serious: Yes (Other)
  Sender: FDA-Public Use
  Company Number: CERZ-11107

PATIENT
  Age: 58 Year
  Sex: Male
  Weight: 81.6475 kg

DRUGS (2)
  1. CEREZYME [Suspect]
     Indication: GAUCHER'S DISEASE
     Dosage: 2200 UNITS Q4WKS IV
     Route: 042
     Dates: start: 19970401, end: 20060105
  2. CEREZYME [Suspect]
     Indication: GAUCHER'S DISEASE
     Dosage: 2400 UNITS Q4WKS IV
     Route: 042
     Dates: start: 19970401, end: 20060105

REACTIONS (1)
  - PROSTATE CANCER [None]
